FAERS Safety Report 13037176 (Version 1)
Quarter: 2016Q4

REPORT INFORMATION
  Report Type: Spontaneous
  Country: IE (occurrence: IE)
  Receive Date: 20161216
  Receipt Date: 20161216
  Transmission Date: 20170207
  Serious: Yes (Other)
  Sender: FDA-Public Use
  Company Number: PHHY2016IE043252

PATIENT
  Sex: Female

DRUGS (1)
  1. ALLOPUR [Suspect]
     Active Substance: ALLOPURINOL
     Indication: BLOOD URIC ACID INCREASED
     Dosage: 100 MG, QD
     Route: 048
     Dates: start: 201505, end: 201603

REACTIONS (8)
  - Cough [Recovering/Resolving]
  - Cellulitis [Unknown]
  - Drug hypersensitivity [Unknown]
  - Skin ulcer [Not Recovered/Not Resolved]
  - Angiopathy [Unknown]
  - Dyspnoea [Not Recovered/Not Resolved]
  - Nasal congestion [Recovering/Resolving]
  - Rash [Unknown]

NARRATIVE: CASE EVENT DATE: 201512
